FAERS Safety Report 14700207 (Version 1)
Quarter: 2018Q1

REPORT INFORMATION
  Report Type: Spontaneous
  Country: US (occurrence: US)
  Receive Date: 20180330
  Receipt Date: 20180330
  Transmission Date: 20180509
  Serious: Yes (Hospitalization, Other)
  Sender: FDA-Public Use
  Company Number: US-MYLANLABS-2018M1019493

PATIENT
  Age: 48 Year
  Sex: Male

DRUGS (1)
  1. CABERGOLINE. [Suspect]
     Active Substance: CABERGOLINE
     Indication: PITUITARY TUMOUR BENIGN
     Route: 065

REACTIONS (3)
  - Visual pathway disorder [Recovered/Resolved]
  - Blindness [Recovered/Resolved]
  - Empty sella syndrome [Recovered/Resolved]
